FAERS Safety Report 7629020-0 (Version None)
Quarter: 2011Q3

REPORT INFORMATION
  Report Type: 
  Country: None (occurrence: None)
  Receive Date: 20110722
  Receipt Date: 20110505
  Transmission Date: 20111222
  Serious: No
  Sender: FDA-Public Use
  Company Number: US-MYLANLABS-2011S1009293

PATIENT
  Age: 29 Year
  Sex: Female

DRUGS (4)
  1. FLEXERIL [Concomitant]
  2. IBUPROFEN [Concomitant]
  3. HYDROCODONE BITARTRATE [Concomitant]
  4. BUPROPION HYDROCHLORIDE [Suspect]
     Indication: EX-TOBACCO USER
     Route: 048
     Dates: start: 20110428, end: 20110502

REACTIONS (6)
  - SUICIDAL IDEATION [None]
  - SWOLLEN TONGUE [None]
  - DIZZINESS [None]
  - GLOSSITIS [None]
  - MALAISE [None]
  - INSOMNIA [None]
